FAERS Safety Report 8294762-3 (Version None)
Quarter: 2012Q2

REPORT INFORMATION
  Report Type: 
  Country: None (occurrence: None)
  Receive Date: 20120418
  Receipt Date: 20120409
  Transmission Date: 20120825
  Serious: Yes (Hospitalization)
  Sender: FDA-Public Use
  Company Number: US-FRI-1000029688

PATIENT
  Sex: Female

DRUGS (1)
  1. VIIBRYD [Suspect]

REACTIONS (2)
  - ANAPHYLACTIC SHOCK [None]
  - OEDEMA PERIPHERAL [None]
